FAERS Safety Report 5466532-2 (Version None)
Quarter: 2007Q3

REPORT INFORMATION
  Report Type: 
  Country: None (occurrence: None)
  Receive Date: 20070820
  Receipt Date: 20070608
  Transmission Date: 20080115
  Serious: No
  Sender: FDA-Public Use
  Company Number: WAES 0706USA01565

PATIENT
  Age: 71 Year
  Sex: Male

DRUGS (6)
  1. JANUVIA [Suspect]
     Indication: BLOOD GLUCOSE
     Dosage: 100 MG/DAILY/PO
     Route: 048
     Dates: start: 20070604, end: 20070608
  2. ACETANOL [Concomitant]
  3. DARVON [Concomitant]
  4. LANTUS [Concomitant]
  5. LIPITOR [Concomitant]
  6. METFORMIN HYDROCHLORIDE [Concomitant]

REACTIONS (2)
  - COUGH [None]
  - THROAT IRRITATION [None]
